FAERS Safety Report 5746560-X (Version None)
Quarter: 2008Q2

REPORT INFORMATION
  Report Type: 
  Country: None (occurrence: None)
  Receive Date: 20080522
  Receipt Date: 20080519
  Transmission Date: 20081010
  Serious: Yes (Death)
  Sender: FDA-Public Use
  Company Number: CN-MERCK-0805CHN00022

PATIENT

DRUGS (1)
  1. PRIMAXIN [Suspect]
     Route: 042
     Dates: start: 20070101

REACTIONS (2)
  - ANAPHYLACTIC SHOCK [None]
  - HYPERSENSITIVITY [None]
